FAERS Safety Report 4686038-8 (Version None)
Quarter: 2005Q2

REPORT INFORMATION
  Report Type: 
  Country: None (occurrence: None)
  Receive Date: 20050609
  Receipt Date: 20050516
  Transmission Date: 20051028
  Serious: Yes (Death)
  Sender: FDA-Public Use
  Company Number: GB-JNJFOC-20050105122

PATIENT
  Sex: Female

DRUGS (1)
  1. RISPERDAL [Suspect]
     Indication: DRUG USE FOR UNKNOWN INDICATION
     Dosage: STOPPED APPROX 11 WEEKS PRIOR TO PATIENT'S DEATH
     Route: 049

REACTIONS (3)
  - CEREBROVASCULAR ACCIDENT [None]
  - LIPIDS INCREASED [None]
  - VASCULITIS CEREBRAL [None]
